FAERS Safety Report 21511257 (Version 1)
Quarter: 2022Q4

REPORT INFORMATION
  Report Type: Spontaneous
  Country: US (occurrence: US)
  Receive Date: 20221027
  Receipt Date: 20221027
  Transmission Date: 20230112
  Serious: Yes (Life-Threatening, Other)
  Sender: FDA-Public Use
  Company Number: US-SPECGX-T202202210

PATIENT
  Age: 19 Day
  Sex: Male

DRUGS (1)
  1. FENTANYL CITRATE [Suspect]
     Active Substance: FENTANYL CITRATE
     Indication: Product used for unknown indication
     Dosage: UNK
     Route: 065

REACTIONS (7)
  - Toxicity to various agents [Recovered/Resolved]
  - Respiratory depression [Recovered/Resolved]
  - Muscle strain [Recovered/Resolved]
  - Breath holding [Recovered/Resolved]
  - Eye movement disorder [Recovered/Resolved]
  - Lethargy [Recovered/Resolved]
  - Heart rate increased [Recovered/Resolved]
